FAERS Safety Report 12464916 (Version 1)
Quarter: 2016Q2

REPORT INFORMATION
  Report Type: Spontaneous
  Country: ID (occurrence: ID)
  Receive Date: 20160614
  Receipt Date: 20160614
  Transmission Date: 20160815
  Serious: Yes (Death, Hospitalization)
  Sender: FDA-Public Use
  Company Number: ID-BAYER-2016-111176

PATIENT
  Age: 64 Year
  Sex: Female

DRUGS (4)
  1. NEXAVAR [Suspect]
     Active Substance: SORAFENIB
     Indication: HEPATOCELLULAR CARCINOMA
     Dosage: 200 MG, BID
     Route: 048
     Dates: start: 20160513, end: 20160514
  2. NEXAVAR [Suspect]
     Active Substance: SORAFENIB
     Indication: HEPATOCELLULAR CARCINOMA
     Dosage: 200 MG, QD
     Route: 048
     Dates: start: 201601, end: 201601
  3. NEXAVAR [Suspect]
     Active Substance: SORAFENIB
     Indication: HEPATOCELLULAR CARCINOMA
     Dosage: 200 MG, BID
     Route: 048
     Dates: start: 201601, end: 201601
  4. NEXAVAR [Suspect]
     Active Substance: SORAFENIB
     Indication: HEPATOCELLULAR CARCINOMA
     Dosage: 100 MG, BID
     Route: 048
     Dates: start: 201601, end: 201604

REACTIONS (10)
  - Feeling hot [None]
  - Vomiting [None]
  - Death [Fatal]
  - Oedema peripheral [None]
  - Vomiting [None]
  - Off label use [None]
  - Hypophagia [None]
  - Blood albumin decreased [None]
  - Melaena [None]
  - Diarrhoea [None]

NARRATIVE: CASE EVENT DATE: 2016
